FAERS Safety Report 18867435 (Version 8)
Quarter: 2024Q3

REPORT INFORMATION
  Report Type: Report from Study
  Country: CO (occurrence: CO)
  Receive Date: 20210209
  Receipt Date: 20240813
  Transmission Date: 20241016
  Serious: Yes (Other)
  Sender: NOVARTIS
  Company Number: NVSC2020CO348869

PATIENT
  Sex: Female
  Weight: 67 kg

DRUGS (20)
  1. KISQALI [Suspect]
     Active Substance: RIBOCICLIB
     Indication: Hormone receptor positive HER2 negative breast cancer
     Dosage: 600 MG, QD (3 OF 200 MG)
     Route: 048
     Dates: start: 20200825
  2. KISQALI [Suspect]
     Active Substance: RIBOCICLIB
     Dosage: 600 MG, QD
     Route: 048
     Dates: start: 202010
  3. KISQALI [Suspect]
     Active Substance: RIBOCICLIB
     Dosage: 400 MG, QD (TABLET OF 200 MG)
     Route: 048
     Dates: start: 202010
  4. KISQALI [Suspect]
     Active Substance: RIBOCICLIB
     Dosage: 200 MG, 2 TAB
     Route: 048
     Dates: end: 202102
  5. KISQALI [Suspect]
     Active Substance: RIBOCICLIB
     Dosage: 200 MG, 2 TAB
     Route: 048
     Dates: start: 202103
  6. KISQALI [Suspect]
     Active Substance: RIBOCICLIB
     Dosage: 600 MG, QD
     Route: 048
  7. FEMARA [Suspect]
     Active Substance: LETROZOLE
     Indication: Breast cancer
     Dosage: 2.5 MG, QD
     Route: 048
     Dates: start: 20200825
  8. FEMARA [Suspect]
     Active Substance: LETROZOLE
     Dosage: 2.5 MG, QD
     Route: 048
     Dates: start: 202010
  9. LEVOTHYROXINE [Concomitant]
     Active Substance: LEVOTHYROXINE\LEVOTHYROXINE SODIUM
     Indication: Thyroid disorder
     Dosage: 50 MG, QD  (START DATE: 15 YEARS AGO)
     Route: 048
  10. LEVOTHYROXINE [Concomitant]
     Active Substance: LEVOTHYROXINE\LEVOTHYROXINE SODIUM
     Indication: Hypothyroidism
     Dosage: 50 MG, QD
     Route: 048
     Dates: start: 202003
  11. LEVOTHYROXINE [Concomitant]
     Active Substance: LEVOTHYROXINE\LEVOTHYROXINE SODIUM
     Dosage: 50 MG, QD
     Route: 048
     Dates: start: 202007
  12. CALCIUM [Concomitant]
     Active Substance: CALCIUM
     Indication: Bone disorder
     Dosage: 1 DOSAGE FORM, QD
     Route: 048
     Dates: start: 202011
  13. CALCIUM [Concomitant]
     Active Substance: CALCIUM
     Dosage: 600 MG, QD
     Route: 048
     Dates: start: 202101
  14. BUTYLSCOPOLAMINE [Concomitant]
     Active Substance: BUTYLSCOPOLAMINE
     Indication: Abdominal pain upper
     Dosage: UNK
     Route: 048
  15. BUTYLSCOPOLAMINE [Concomitant]
     Active Substance: BUTYLSCOPOLAMINE
     Dosage: UNK PRN, (WHEN NEEDS IT, START DATE: 2 MONTHS AGO)
     Route: 048
  16. BUTYLSCOPOLAMINE [Concomitant]
     Active Substance: BUTYLSCOPOLAMINE
     Dosage: 10 MG, PRN (AT NEEDED)
     Route: 048
     Dates: start: 202003
  17. HERBALS\PLANTAGO OVATA SEED [Concomitant]
     Active Substance: HERBALS\PLANTAGO OVATA SEED
     Indication: Constipation
     Dosage: UNK
     Route: 065
  18. HERBALS\PLANTAGO OVATA SEED [Concomitant]
     Active Substance: HERBALS\PLANTAGO OVATA SEED
     Dosage: UNK (EVERY 12 HOURS) (AFTER BREAKFAST AND AFTER FOOD), CURRENTLY ONLY TAKES IT AT NIGHT
     Route: 048
     Dates: start: 202011
  19. PANTOPRAZOLE [Concomitant]
     Active Substance: PANTOPRAZOLE
     Indication: Synovial cyst
     Dosage: 40 MG
     Route: 048
     Dates: start: 202011
  20. PREGABALIN [Concomitant]
     Active Substance: PREGABALIN
     Indication: Breast pain
     Dosage: UNK
     Route: 065

REACTIONS (15)
  - Helicobacter infection [Recovered/Resolved]
  - Arthralgia [Not Recovered/Not Resolved]
  - Tongue dry [Not Recovered/Not Resolved]
  - Lip dry [Not Recovered/Not Resolved]
  - Nasal dryness [Recovered/Resolved]
  - Alopecia [Recovered/Resolved]
  - Dry mouth [Recovered/Resolved]
  - Abdominal pain [Unknown]
  - Nasal pruritus [Recovered/Resolved]
  - Bone disorder [Not Recovered/Not Resolved]
  - Breast induration [Recovered/Resolved]
  - Lip disorder [Not Recovered/Not Resolved]
  - Bone pain [Not Recovered/Not Resolved]
  - Hypersensitivity [Unknown]
  - Pain in extremity [Unknown]
